FAERS Safety Report 4871672-2 (Version None)
Quarter: 2006Q1

REPORT INFORMATION
  Report Type: 
  Country: None (occurrence: None)
  Receive Date: 20060104
  Receipt Date: 20051215
  Transmission Date: 20060701
  Serious: Yes (Hospitalization)
  Sender: FDA-Public Use
  Company Number: JP-BRACCO-BRO-009670

PATIENT
  Sex: Male
  Weight: 60 kg

DRUGS (8)
  1. IOPAMIRON [Suspect]
     Indication: ANGINA PECTORIS
     Route: 013
     Dates: start: 20051208, end: 20051208
  2. IOPAMIRON [Suspect]
     Route: 013
     Dates: start: 20051208, end: 20051208
  3. GASTER D [Concomitant]
     Route: 048
     Dates: start: 20051102
  4. FUNGIZONE [Concomitant]
     Route: 050
     Dates: start: 20051102
  5. PREDONINE [Concomitant]
     Route: 048
     Dates: start: 20051102
  6. NEORAL [Concomitant]
     Route: 048
     Dates: start: 20051102
  7. FLOMOX [Concomitant]
     Route: 048
     Dates: start: 20051102
  8. PL GRAN. [Concomitant]
     Route: 048
     Dates: start: 20051102

REACTIONS (2)
  - CONDITION AGGRAVATED [None]
  - INTERSTITIAL LUNG DISEASE [None]
